FAERS Safety Report 9430404 (Version 2)
Quarter: 2013Q4

REPORT INFORMATION
  Report Type: Spontaneous
  Country: GB (occurrence: None)
  Receive Date: 20130726
  Receipt Date: 20131112
  Transmission Date: 20140711
  Serious: Yes (Hospitalization)
  Sender: FDA-Public Use
  Company Number: AUR-APL-2013-06128

PATIENT
  Age: 86 Year
  Sex: Male

DRUGS (10)
  1. PERINDOPRIL (PERINDOPRIL) [Suspect]
     Indication: PRODUCT USED FOR UNKNOWN INDICATION
     Route: 048
     Dates: end: 20110414
  2. CO-AMILOZIDE [Suspect]
     Indication: PRODUCT USED FOR UNKNOWN INDICATION
  3. CO-CODAMOL (PANADEINE CO) [Concomitant]
  4. DIGOXIN (DIGOXIN) [Concomitant]
  5. FERROUS SULPHATE (FERROUS SULFATE) [Concomitant]
  6. GOSSERELIN (GOSERELIN) [Concomitant]
  7. HYDROXOCOBALAMIN (HYDROXOCOBALAMIN) [Concomitant]
  8. LANSOPRAZOLE (LANSOPRAZOLE) [Concomitant]
  9. WARFARIN (WARFARIN) [Concomitant]
  10. FUROSEMIDE (FUROSEMIDE) [Suspect]

REACTIONS (2)
  - Pneumonia [None]
  - Renal failure acute [None]
